FAERS Safety Report 6312735-4 (Version None)
Quarter: 2009Q3

REPORT INFORMATION
  Report Type: 
  Country: None (occurrence: None)
  Receive Date: 20090818
  Receipt Date: 20090812
  Transmission Date: 20100115
  Serious: Yes (Other)
  Sender: FDA-Public Use
  Company Number: US-BRISTOL-MYERS SQUIBB COMPANY-14741789

PATIENT
  Age: 54 Year
  Sex: Male

DRUGS (1)
  1. AVAPRO [Suspect]
     Indication: HYPERTENSION
     Dates: start: 20060101

REACTIONS (1)
  - TONSILLECTOMY [None]
